FAERS Safety Report 5309742-7 (Version None)
Quarter: 2007Q2

REPORT INFORMATION
  Report Type: 
  Country: None (occurrence: None)
  Receive Date: 20070427
  Receipt Date: 20060405
  Transmission Date: 20071010
  Serious: Yes (Hospitalization)
  Sender: FDA-Public Use
  Company Number: US-GLAXOSMITHKLINE-A0600560A

PATIENT
  Age: 39 Year
  Sex: Male

DRUGS (4)
  1. ZOFRAN [Suspect]
     Indication: DRUG USE FOR UNKNOWN INDICATION
     Dosage: 8MG THREE TIMES PER DAY
     Route: 048
  2. NEXIUM [Concomitant]
  3. ZELNORM [Concomitant]
  4. KADIAN [Concomitant]

REACTIONS (3)
  - CONSTIPATION [None]
  - DRUG INEFFECTIVE [None]
  - NAUSEA [None]
